FAERS Safety Report 25265830 (Version 1)
Quarter: 2025Q2

REPORT INFORMATION
  Report Type: Spontaneous
  Country: KR (occurrence: KR)
  Receive Date: 20250503
  Receipt Date: 20250503
  Transmission Date: 20250716
  Serious: Yes (Life-Threatening, Hospitalization)
  Sender: APNAR PHARMA
  Company Number: KR-Apnar-000200

PATIENT
  Age: 46 Year
  Sex: Female
  Weight: 80 kg

DRUGS (4)
  1. FLUOXETINE HYDROCHLORIDE [Interacting]
     Active Substance: FLUOXETINE HYDROCHLORIDE
     Indication: Depression
  2. PHENTERMINE [Interacting]
     Active Substance: PHENTERMINE
     Indication: Weight decreased
  3. TOPIRAMATE [Interacting]
     Active Substance: TOPIRAMATE
     Indication: Weight decreased
  4. CHLORTHALIDONE [Concomitant]
     Active Substance: CHLORTHALIDONE
     Indication: Weight decreased

REACTIONS (10)
  - Serotonin syndrome [Recovered/Resolved]
  - Acute kidney injury [Recovered/Resolved]
  - Rhabdomyolysis [Recovered/Resolved]
  - Stress cardiomyopathy [Recovered/Resolved]
  - Pulmonary embolism [Recovered/Resolved]
  - Multiple organ dysfunction syndrome [Recovered/Resolved]
  - Hypokalaemia [Recovered/Resolved]
  - Left ventricular dysfunction [Recovered/Resolved]
  - Right ventricular dysfunction [Recovered/Resolved]
  - Drug interaction [Unknown]
